FAERS Safety Report 7426345-9 (Version None)
Quarter: 2011Q2

REPORT INFORMATION
  Report Type: 
  Country: None (occurrence: None)
  Receive Date: 20110420
  Receipt Date: 20110412
  Transmission Date: 20111010
  Serious: Yes (Hospitalization)
  Sender: FDA-Public Use
  Company Number: B0714154A

PATIENT
  Sex: Male

DRUGS (3)
  1. LANOXIN [Suspect]
     Indication: ATRIAL FIBRILLATION
     Dosage: .25MG PER DAY
     Route: 048
     Dates: start: 20110228, end: 20110228
  2. LOSAZID [Concomitant]
  3. DILATREND [Suspect]
     Indication: ATRIAL FIBRILLATION
     Dosage: 12.5MG PER DAY
     Route: 048
     Dates: start: 20110228, end: 20110228

REACTIONS (5)
  - SYNCOPE [None]
  - HYPOTENSION [None]
  - VOMITING [None]
  - FALL [None]
  - VERTIGO [None]
